FAERS Safety Report 7081834-4 (Version None)
Quarter: 2010Q4

REPORT INFORMATION
  Report Type: 
  Country: None (occurrence: None)
  Receive Date: 20101103
  Receipt Date: 20101026
  Transmission Date: 20110411
  Serious: Yes (Death, Hospitalization)
  Sender: FDA-Public Use
  Company Number: US-ELI_LILLY_AND_COMPANY-US201008001476

PATIENT
  Sex: Male
  Weight: 86.621 kg

DRUGS (2)
  1. GEMZAR [Suspect]
     Indication: PANCREATIC CARCINOMA METASTATIC
     Dosage: 1000 MG/M2, UNK
     Dates: start: 20100208, end: 20100405
  2. OXALIPLATIN [Concomitant]
     Indication: PANCREATIC CARCINOMA METASTATIC
     Dosage: 100 MG/M2, UNK

REACTIONS (3)
  - FALL [None]
  - MALIGNANT NEOPLASM PROGRESSION [None]
  - UPPER LIMB FRACTURE [None]
